FAERS Safety Report 9735784 (Version 2)
Quarter: 2013Q4

REPORT INFORMATION
  Report Type: Spontaneous
  Country: US (occurrence: US)
  Receive Date: 20131206
  Receipt Date: 20131206
  Transmission Date: 20140711
  Serious: No
  Sender: FDA-Public Use
  Company Number: US-GILEAD-2009-0022676

PATIENT
  Age: 35 Year
  Sex: Female

DRUGS (6)
  1. LETAIRIS [Suspect]
     Indication: PULMONARY ARTERIAL HYPERTENSION
     Route: 048
     Dates: start: 200810
  2. REVATIO [Concomitant]
  3. SYMBICORT [Concomitant]
  4. ALPRAZOLAM [Concomitant]
  5. LEXAPRO [Concomitant]
  6. AMBIEN [Concomitant]

REACTIONS (1)
  - Oedema peripheral [Recovered/Resolved with Sequelae]
